FAERS Safety Report 5140137-5 (Version None)
Quarter: 2006Q4

REPORT INFORMATION
  Report Type: 
  Country: None (occurrence: None)
  Receive Date: 20061031
  Receipt Date: 20060929
  Transmission Date: 20070319
  Serious: Yes (Hospitalization)
  Sender: FDA-Public Use
  Company Number: DE-ROCHE-465524

PATIENT
  Age: 21 Year
  Sex: Female
  Weight: 58 kg

DRUGS (3)
  1. PEG-INTERFERON A-2A (RO 25-8310) [Suspect]
     Route: 058
     Dates: start: 20050125, end: 20051026
  2. RIBAVIRIN [Suspect]
     Route: 048
     Dates: start: 20050125, end: 20051026
  3. ACETAMINOPHEN [Concomitant]
     Route: 048
     Dates: start: 20050125, end: 20051026

REACTIONS (7)
  - BLOOD CULTURE POSITIVE [None]
  - HEPATOMEGALY [None]
  - LYMPHADENOPATHY [None]
  - PERICARDIAL EFFUSION [None]
  - PLEURAL EFFUSION [None]
  - STAPHYLOCOCCAL INFECTION [None]
  - TACHYCARDIA [None]
